FAERS Safety Report 23603510 (Version 1)
Quarter: 2024Q1

REPORT INFORMATION
  Report Type: Spontaneous
  Country: JP (occurrence: JP)
  Receive Date: 20240307
  Receipt Date: 20240307
  Transmission Date: 20240410
  Serious: Yes (Other)
  Sender: FDA-Public Use
  Company Number: JP-AMGEN-JPNSP2023192835

PATIENT
  Sex: Female

DRUGS (5)
  1. BLINCYTO [Suspect]
     Active Substance: BLINATUMOMAB
     Indication: B precursor type acute leukaemia
     Dosage: 9 MICROGRAM, QD (CONTINUOUS IV DRIP INFUSION)
     Route: 042
     Dates: start: 20230927, end: 202310
  2. BLINCYTO [Suspect]
     Active Substance: BLINATUMOMAB
     Dosage: 9 MICROGRAM, QD (CONTINUOUS IV DRIP INFUSION)
     Route: 042
     Dates: start: 202310, end: 202310
  3. BLINCYTO [Suspect]
     Active Substance: BLINATUMOMAB
     Dosage: 9 MICROGRAM, QD (CONTINUOUS IV DRIP INFUSION)
     Route: 042
     Dates: start: 20231014
  4. BLINCYTO [Suspect]
     Active Substance: BLINATUMOMAB
     Dosage: UNK, CONTINUING, DRIP INFUSION
     Route: 042
     Dates: start: 20240226
  5. FILGRASTIM [Suspect]
     Active Substance: FILGRASTIM
     Indication: White blood cell count decreased
     Dosage: UNK
     Route: 065
     Dates: start: 20231113

REACTIONS (3)
  - Altered state of consciousness [Recovered/Resolved]
  - Neurological symptom [Recovered/Resolved]
  - Sensory disturbance [Recovering/Resolving]

NARRATIVE: CASE EVENT DATE: 20231004
